FAERS Safety Report 20647539 (Version 1)
Quarter: 2022Q1

REPORT INFORMATION
  Report Type: Report from Study
  Country: US (occurrence: US)
  Receive Date: 20220329
  Receipt Date: 20220329
  Transmission Date: 20220424
  Serious: Yes (Hospitalization, Other)
  Sender: FDA-Public Use
  Company Number: US-GILEAD-2022-0575324

PATIENT
  Age: 71 Year
  Sex: Female

DRUGS (4)
  1. AZTREONAM LYSINE [Suspect]
     Active Substance: AZTREONAM LYSINE
     Indication: Chronic obstructive pulmonary disease
     Dosage: RECONSTITUTE WITH 1ML SUPPLIED DILUENT , TID
     Route: 055
  2. CALTRATE D3 [Concomitant]
  3. VITAMINS NOS [Concomitant]
     Active Substance: VITAMINS
  4. OMEPRAZOLE [Concomitant]
     Active Substance: OMEPRAZOLE

REACTIONS (4)
  - Drug hypersensitivity [Not Recovered/Not Resolved]
  - Bronchospasm [Unknown]
  - Cystic fibrosis [Unknown]
  - Off label use [Recovered/Resolved]
